FAERS Safety Report 7394478-1 (Version None)
Quarter: 2011Q2

REPORT INFORMATION
  Report Type: 
  Country: None (occurrence: None)
  Receive Date: 20110405
  Receipt Date: 20110323
  Transmission Date: 20111010
  Serious: Yes (Other)
  Sender: FDA-Public Use
  Company Number: PHHO2011GR05273

PATIENT
  Sex: Male
  Weight: 72 kg

DRUGS (12)
  1. METFORMIN [Concomitant]
     Indication: DIABETES MELLITUS
  2. ENALAPRIL MALEATE [Suspect]
     Indication: CARDIAC FAILURE
     Dosage: NO TREATMENT
  3. AMIODARONE HCL [Concomitant]
     Indication: VENTRICULAR ARRHYTHMIA
  4. ATORVASTATIN CALCIUM [Concomitant]
  5. BLINDED NO TREATMENT RECEIVED [Suspect]
     Indication: CARDIAC FAILURE
     Dosage: NO TREATMENT
  6. FUROSEMIDE [Concomitant]
     Indication: CARDIAC FAILURE
  7. ENALAPRIL MALEATE [Suspect]
     Indication: CARDIAC FAILURE
     Dosage: UNK
     Dates: start: 20110313, end: 20110318
  8. EPLERENONE [Concomitant]
     Indication: CARDIAC FAILURE
  9. METOPROLOL [Concomitant]
     Indication: CARDIAC FAILURE
  10. BLINDED ALISKIREN [Suspect]
     Indication: CARDIAC FAILURE
     Dosage: NO TREATMENT
  11. ALISKIREN [Suspect]
     Indication: CARDIAC FAILURE
  12. CLOPIDOGREL [Concomitant]

REACTIONS (1)
  - RENAL FAILURE [None]
